FAERS Safety Report 6735934-6 (Version None)
Quarter: 2010Q2

REPORT INFORMATION
  Report Type: 
  Country: None (occurrence: None)
  Receive Date: 20100521
  Receipt Date: 20100514
  Transmission Date: 20101027
  Serious: Yes (Other)
  Sender: FDA-Public Use
  Company Number: B0650110A

PATIENT
  Sex: Female
  Weight: 48 kg

DRUGS (10)
  1. ARIXTRA [Suspect]
     Indication: THROMBOSIS PROPHYLAXIS
     Dosage: 1.5MG PER DAY
     Route: 058
     Dates: start: 20071129, end: 20071203
  2. WARFARIN SODIUM [Concomitant]
     Route: 048
  3. AMOBAN [Concomitant]
     Route: 048
  4. CANDESARTAN CILEXETIL [Concomitant]
     Route: 048
  5. RENIVACE [Concomitant]
     Route: 048
  6. ADALAT [Concomitant]
     Route: 048
  7. TENORMIN [Concomitant]
     Route: 048
  8. CLARITH [Concomitant]
     Route: 048
  9. MUCODYNE [Concomitant]
     Route: 048
  10. UNKNOWN DRUG [Concomitant]
     Dates: start: 20071203, end: 20071204

REACTIONS (1)
  - PULMONARY EMBOLISM [None]
